FAERS Safety Report 8329267-4 (Version None)
Quarter: 2012Q2

REPORT INFORMATION
  Report Type: 
  Country: None (occurrence: None)
  Receive Date: 20120502
  Receipt Date: 20110825
  Transmission Date: 20120825
  Serious: Yes (Other)
  Sender: FDA-Public Use
  Company Number: US-ASTRAZENECA-2011SE51285

PATIENT

DRUGS (1)
  1. FASLODEX [Suspect]
     Route: 030
     Dates: start: 20101201

REACTIONS (3)
  - BREAST CANCER METASTATIC [None]
  - DISEASE PROGRESSION [None]
  - METASTASES TO LUNG [None]
